FAERS Safety Report 5410267-9 (Version None)
Quarter: 2007Q3

REPORT INFORMATION
  Report Type: 
  Country: None (occurrence: None)
  Receive Date: 20070808
  Receipt Date: 20070727
  Transmission Date: 20080115
  Serious: Yes (Death)
  Sender: FDA-Public Use
  Company Number: 2007RL000189

PATIENT
  Age: 57 Year
  Sex: Female
  Weight: 44.4525 kg

DRUGS (13)
  1. RYTHMOL [Suspect]
     Indication: ATRIAL FIBRILLATION
     Dosage: 425 MG; BID; PO, 325 MG; BID; PO
     Route: 048
     Dates: start: 20060616, end: 20060623
  2. RYTHMOL [Suspect]
     Indication: ATRIAL FIBRILLATION
     Dosage: 425 MG; BID; PO, 325 MG; BID; PO
     Route: 048
     Dates: start: 20060623, end: 20061001
  3. COUMADIN [Concomitant]
  4. ASPIRIN [Concomitant]
  5. CARDIZEM [Concomitant]
  6. FOLIC ACID [Concomitant]
  7. LASIX [Concomitant]
  8. POTASSIUM CHLORIDE [Concomitant]
  9. CRESTOR [Concomitant]
  10. COREG [Concomitant]
  11. PREVACID [Concomitant]
  12. METFORMIN HCL [Concomitant]
  13. WELLBUTRIN [Concomitant]

REACTIONS (1)
  - DEATH [None]
